FAERS Safety Report 18551396 (Version 1)
Quarter: 2020Q4

REPORT INFORMATION
  Report Type: Spontaneous
  Country: CA (occurrence: CA)
  Receive Date: 20201126
  Receipt Date: 20201126
  Transmission Date: 20210114
  Serious: Yes (Other)
  Sender: FDA-Public Use
  Company Number: NVSC2020CA311834

PATIENT
  Sex: Female

DRUGS (2)
  1. CEFPROZIL. [Suspect]
     Active Substance: CEFPROZIL
     Indication: PRODUCT USED FOR UNKNOWN INDICATION
     Dosage: UNK UNK, UNKNOWN
     Route: 065
  2. CEFPROZIL. [Suspect]
     Active Substance: CEFPROZIL
     Dosage: UNK UNK, UNKNOWN
     Route: 065

REACTIONS (1)
  - Pancytopenia [Unknown]
